FAERS Safety Report 22226847 (Version 2)
Quarter: 2023Q2

REPORT INFORMATION
  Report Type: Spontaneous
  Country: US (occurrence: US)
  Receive Date: 20230419
  Receipt Date: 20230421
  Transmission Date: 20230721
  Serious: No
  Sender: FDA-Public Use
  Company Number: US-002147023-NVSC2023US089209

PATIENT
  Sex: Male

DRUGS (1)
  1. MEKINIST [Suspect]
     Active Substance: TRAMETINIB DIMETHYL SULFOXIDE
     Indication: Brain neoplasm
     Dosage: 0.5 MG, QD
     Route: 050
     Dates: start: 202301

REACTIONS (6)
  - Dry skin [Unknown]
  - Rash [Unknown]
  - Skin irritation [Unknown]
  - Abdominal pain upper [Unknown]
  - Pain in extremity [Unknown]
  - Product use in unapproved indication [Unknown]
